FAERS Safety Report 12144203 (Version 2)
Quarter: 2016Q2

REPORT INFORMATION
  Report Type: Report from Study
  Country: US (occurrence: US)
  Receive Date: 20160304
  Receipt Date: 20160428
  Transmission Date: 20160815
  Serious: Yes (Other)
  Sender: FDA-Public Use
  Company Number: US-BRISTOL-MYERS SQUIBB COMPANY-BMS-2016-014269

PATIENT
  Age: 77 Year
  Sex: Female
  Weight: 61.23 kg

DRUGS (1)
  1. APIXABAN [Suspect]
     Active Substance: APIXABAN
     Indication: PRODUCT USED FOR UNKNOWN INDICATION
     Route: 048

REACTIONS (9)
  - Intervertebral disc degeneration [Unknown]
  - Dyspnoea [Unknown]
  - Syncope [Unknown]
  - Atrial fibrillation [Unknown]
  - Herpes zoster [Unknown]
  - Fatigue [Unknown]
  - Chest discomfort [Unknown]
  - Atrial flutter [Unknown]
  - Dizziness [Unknown]

NARRATIVE: CASE EVENT DATE: 20160224
